FAERS Safety Report 20490249 (Version 1)
Quarter: 2022Q1

REPORT INFORMATION
  Report Type: Spontaneous
  Country: US (occurrence: None)
  Receive Date: 20220217
  Receipt Date: 20220217
  Transmission Date: 20220423
  Serious: Yes (Life-Threatening, Other)
  Sender: FDA-Public Use
  Company Number: None

PATIENT
  Age: 34 Year
  Sex: Female
  Weight: 89.36 kg

DRUGS (1)
  1. MIRENA [Suspect]
     Active Substance: LEVONORGESTREL

REACTIONS (11)
  - Haemorrhage [None]
  - Device expulsion [None]
  - Immune system disorder [None]
  - Urine output decreased [None]
  - Pyrexia [None]
  - Chills [None]
  - Fatigue [None]
  - Infection [None]
  - Liver injury [None]
  - Renal injury [None]
  - Blood potassium decreased [None]
